FAERS Safety Report 6453155-1 (Version None)
Quarter: 2009Q4

REPORT INFORMATION
  Report Type: 
  Country: None (occurrence: None)
  Receive Date: 20091117
  Receipt Date: 20091106
  Transmission Date: 20100525
  Serious: Yes (Life-Threatening)
  Sender: FDA-Public Use
  Company Number: DSA_33347_2009

PATIENT
  Sex: Male

DRUGS (6)
  1. DILTIAZEM [Suspect]
     Indication: DRUG USE FOR UNKNOWN INDICATION
     Dosage: DF ORAL
     Route: 048
     Dates: start: 20040101, end: 20081105
  2. CORDARONE [Suspect]
     Indication: ATRIAL FIBRILLATION
     Dosage: DF
     Dates: start: 20081017, end: 20081105
  3. ALLOPURINOL [Suspect]
     Indication: DRUG USE FOR UNKNOWN INDICATION
     Dosage: DF ORAL
     Route: 048
     Dates: start: 20040101, end: 20081105
  4. PREVISCAN /00789001/ PREVISCAN - FLUINDIONE) 20 MG (NOT SPECIFIED) [Suspect]
     Indication: ATRIAL FIBRILLATION
     Dosage: DF ORAL
     Route: 048
     Dates: start: 20081017, end: 20081105
  5. TOLEXINE /00055701/ (TOLEXINE - DOXYCYCLINE) (NOT SPECIFIED) [Suspect]
     Indication: BRONCHOSPASM
     Dosage: DF ORAL
     Route: 048
     Dates: start: 20081022, end: 20081105
  6. ACONITUM NAPELLUS TINCTURE/CODEINE/SISYMBRIUM OFFICINALE SYRUP/ SODIUM [Suspect]
     Indication: BRONCHOSPASM
     Dosage: DF ORAL
     Route: 048
     Dates: start: 20081022, end: 20081105

REACTIONS (4)
  - ASTHMATIC CRISIS [None]
  - CYTOLYTIC HEPATITIS [None]
  - DRUG RASH WITH EOSINOPHILIA AND SYSTEMIC SYMPTOMS [None]
  - SKIN TEST POSITIVE [None]
